FAERS Safety Report 9011482 (Version 1)
Quarter: 2013Q1

REPORT INFORMATION
  Report Type: Spontaneous
  Country: US (occurrence: US)
  Receive Date: 20130108
  Receipt Date: 20130108
  Transmission Date: 20140127
  Serious: Yes (Other)
  Sender: FDA-Public Use
  Company Number: PHEH2013US000653

PATIENT
  Sex: Female

DRUGS (10)
  1. DIOVAN [Suspect]
     Indication: BLOOD PRESSURE INADEQUATELY CONTROLLED
  2. EXFORGE [Suspect]
  3. LEXAPRO [Concomitant]
  4. LEVOTHYROXINE [Concomitant]
  5. VERAPAMIL [Concomitant]
  6. BYSTOLIC [Concomitant]
  7. METFORMIN [Concomitant]
  8. PRAVASTATIN [Concomitant]
  9. POTASSIUM [Concomitant]
  10. INDAPAMIDE [Concomitant]

REACTIONS (1)
  - Arrhythmia [Unknown]
